FAERS Safety Report 11490215 (Version 1)
Quarter: 2015Q3

REPORT INFORMATION
  Report Type: Spontaneous
  Country: US (occurrence: US)
  Receive Date: 20150910
  Receipt Date: 20150910
  Transmission Date: 20151125
  Serious: No
  Sender: FDA-Public Use
  Company Number: US-TEVA-592269USA

PATIENT
  Sex: Female

DRUGS (7)
  1. GABAPENTIN. [Concomitant]
     Active Substance: GABAPENTIN
  2. FISH OIL [Concomitant]
     Active Substance: FISH OIL
  3. COPAXONE [Suspect]
     Active Substance: GLATIRAMER ACETATE
     Indication: MULTIPLE SCLEROSIS
     Route: 058
     Dates: start: 20140801
  4. BACLOFEN. [Concomitant]
     Active Substance: BACLOFEN
  5. LISINOPRIL. [Concomitant]
     Active Substance: LISINOPRIL
  6. FOLIC ACID. [Concomitant]
     Active Substance: FOLIC ACID
  7. LEVETIRACETAM. [Concomitant]
     Active Substance: LEVETIRACETAM

REACTIONS (4)
  - Flushing [Unknown]
  - Erythema [Unknown]
  - Palpitations [Unknown]
  - Pain [Unknown]
